FAERS Safety Report 17878122 (Version 1)
Quarter: 2020Q2

REPORT INFORMATION
  Report Type: Report from Study
  Country: None (occurrence: US)
  Receive Date: 20200609
  Receipt Date: 20200609
  Transmission Date: 20200714
  Serious: Yes (Other)
  Sender: FDA-Public Use
  Company Number: US-ABBVIE-20K-163-3432979-00

PATIENT
  Age: 46 Year
  Sex: Female

DRUGS (1)
  1. HUMIRA [Suspect]
     Active Substance: ADALIMUMAB
     Indication: RHEUMATOID ARTHRITIS
     Route: 058

REACTIONS (5)
  - Eyelid pain [Unknown]
  - Throat clearing [Unknown]
  - Asthenia [Unknown]
  - Systemic lupus erythematosus [Not Recovered/Not Resolved]
  - Hyperacusis [Unknown]

NARRATIVE: CASE EVENT DATE: 20200527
